FAERS Safety Report 23561702 (Version 1)
Quarter: 2024Q1

REPORT INFORMATION
  Report Type: Spontaneous
  Country: US (occurrence: None)
  Receive Date: 20240225
  Receipt Date: 20240225
  Transmission Date: 20240410
  Serious: No
  Sender: FDA-Public Use
  Company Number: None

PATIENT
  Sex: Female

DRUGS (1)
  1. NICOTINE [Suspect]
     Active Substance: NICOTINE
     Indication: Product used for unknown indication
     Dosage: 7 MILLIGRAM/14 MG/21 MG/DAY
     Route: 062
     Dates: start: 20230212

REACTIONS (3)
  - Medication error [Unknown]
  - Inappropriate schedule of product administration [Unknown]
  - Product quality issue [Unknown]
